FAERS Safety Report 24399484 (Version 2)
Quarter: 2024Q4

REPORT INFORMATION
  Report Type: Report from Study
  Country: NL (occurrence: NL)
  Receive Date: 20241005
  Receipt Date: 20241018
  Transmission Date: 20250115
  Serious: Yes (Death, Life-Threatening)
  Sender: ABBVIE
  Company Number: NL-ABBVIE-5950103

PATIENT
  Age: 87 Year
  Sex: Female

DRUGS (5)
  1. CARBIDOPA\LEVODOPA [Suspect]
     Active Substance: CARBIDOPA\LEVODOPA
     Indication: Parkinson^s disease
     Dosage: MD:0.0ML, CD:1.7ML/H, ED:3.0ML?DURATION TEXT: REMAINS AT 16 HOURS
     Route: 050
     Dates: start: 20241002
  2. CARBIDOPA\LEVODOPA [Suspect]
     Active Substance: CARBIDOPA\LEVODOPA
     Dosage: MD:9.0ML, CD:1.9ML/H, ED:0.90ML?DURATION TEXT: REMAINS AT 16 HOURS
     Route: 050
     Dates: start: 20240507, end: 20241002
  3. CARBIDOPA\LEVODOPA [Suspect]
     Active Substance: CARBIDOPA\LEVODOPA
     Dosage: DURATION TEXT: REMAINS AT 16 HOURS
     Route: 050
     Dates: start: 20230214
  4. POLYETHYLENE GLYCOLS [Concomitant]
     Active Substance: POLYETHYLENE GLYCOLS
     Indication: Product used for unknown indication
     Dosage: FREQUENCY TEXT: DAILY
  5. OXYCODONE [Concomitant]
     Active Substance: OXYCODONE
     Indication: Neck pain

REACTIONS (8)
  - General physical health deterioration [Fatal]
  - Pneumonia [Not Recovered/Not Resolved]
  - Confusional state [Not Recovered/Not Resolved]
  - Muscle twitching [Not Recovered/Not Resolved]
  - Bedridden [Not Recovered/Not Resolved]
  - Dyskinesia [Not Recovered/Not Resolved]
  - Muscle rigidity [Not Recovered/Not Resolved]
  - Decubitus ulcer [Not Recovered/Not Resolved]

NARRATIVE: CASE EVENT DATE: 20240101
